FAERS Safety Report 7765473 (Version 7)
Quarter: 2014Q1

REPORT INFORMATION
  Report Type: Report from Study
  Country: US (occurrence: US)
  Receive Date: 20110119
  Receipt Date: 20140221
  Transmission Date: 20141002
  Serious: Yes (Other)
  Sender: FDA-Public Use
  Company Number: US-ROCHE-752794

PATIENT
  Age: 13 Year
  Sex: Female
  Weight: 63 kg

DRUGS (3)
  1. BEVACIZUMAB [Suspect]
     Indication: GLIOMA
     Dosage: 10 MG/KG OVER ^90-30^ MIN ON DAYS 1 AND 15
     Route: 042
  2. IRINOTECAN HYDROCHLORIDE [Suspect]
     Indication: GLIOMA
     Dosage: 125-150 MG/M2 OVER 90 MIN Q2W STARTING ON DAY 15
     Route: 042
  3. COZAAR [Concomitant]
     Route: 065

REACTIONS (1)
  - Osteonecrosis [Recovering/Resolving]
